FAERS Safety Report 25499913 (Version 1)
Quarter: 2025Q3

REPORT INFORMATION
  Report Type: Other
  Country: US (occurrence: US)
  Receive Date: 20250701
  Receipt Date: 20250701
  Transmission Date: 20251021
  Serious: Yes (Hospitalization)
  Sender: ALVOGEN
  Company Number: US-ALVOGEN-2025098237

PATIENT
  Age: 40 Year
  Sex: Male

DRUGS (1)
  1. TRAZODONE [Suspect]
     Active Substance: TRAZODONE HYDROCHLORIDE
     Indication: Product used for unknown indication

REACTIONS (2)
  - Dry gangrene [Unknown]
  - Priapism [Unknown]
